FAERS Safety Report 18181581 (Version 1)
Quarter: 2020Q3

REPORT INFORMATION
  Report Type: Spontaneous
  Country: ES (occurrence: ES)
  Receive Date: 20200821
  Receipt Date: 20200821
  Transmission Date: 20201103
  Serious: Yes (Hospitalization)
  Sender: FDA-Public Use
  Company Number: ES-CADILA HEALTHCARE LIMITED-ES-ZYDUS-027824

PATIENT

DRUGS (4)
  1. LEVOFLOXACIN. [Suspect]
     Active Substance: LEVOFLOXACIN
     Indication: BRONCHITIS
     Dosage: 500 MILLIGRAM,500 MG A DAY FOR 7 DAYS,(INTERVAL :1 DAYS)
     Route: 048
     Dates: start: 201710, end: 201710
  2. FOSTER [Suspect]
     Active Substance: BECLOMETHASONE\FORMOTEROL
     Indication: BRONCHITIS
     Dosage: 1 DOSAGE FORM,100/6 MICROGRAMS 2 TIMES A DAY,(INTERVAL :12 HOURS)
     Route: 055
     Dates: start: 20170710, end: 20171018
  3. SIMVASTATIN. [Suspect]
     Active Substance: SIMVASTATIN
     Indication: HYPERCHOLESTEROLAEMIA
     Dosage: 10 MILLIGRAM,10 MG ONCE A DAY,(INTERVAL :1 DAYS)
     Route: 048
     Dates: start: 20170614, end: 20171018
  4. SIMVASTATIN. [Suspect]
     Active Substance: SIMVASTATIN
     Indication: HYPERCHOLESTEROLAEMIA
     Dosage: 10 MILLIGRAM,10 MG ONCE A DAY,(INTERVAL :1 DAYS)
     Route: 048
     Dates: start: 20130101, end: 20170417

REACTIONS (1)
  - Neutropenia [Recovered/Resolved]

NARRATIVE: CASE EVENT DATE: 20171016
